FAERS Safety Report 6124034-4 (Version None)
Quarter: 2009Q1

REPORT INFORMATION
  Report Type: 
  Country: None (occurrence: None)
  Receive Date: 20090319
  Receipt Date: 20090309
  Transmission Date: 20090719
  Serious: Yes (Other)
  Sender: FDA-Public Use
  Company Number: US-AMGEN-QUU337739

PATIENT
  Age: 58 Year
  Sex: Female

DRUGS (4)
  1. NEULASTA [Suspect]
     Indication: CHEMOTHERAPY
     Route: 065
     Dates: start: 20090302
  2. NEUPOGEN [Suspect]
     Indication: CHEMOTHERAPY
     Dates: start: 20090307
  3. ETOPOSIDE [Concomitant]
     Dates: start: 20090225
  4. IFOSFAMIDE [Concomitant]
     Dates: start: 20090225

REACTIONS (4)
  - FEBRILE NEUTROPENIA [None]
  - THERAPEUTIC RESPONSE DECREASED [None]
  - URINARY TRACT INFECTION [None]
  - WHITE BLOOD CELL COUNT DECREASED [None]
